FAERS Safety Report 11191335 (Version 5)
Quarter: 2015Q3

REPORT INFORMATION
  Report Type: Report from Study
  Country: US (occurrence: US)
  Receive Date: 20150616
  Receipt Date: 20150929
  Transmission Date: 20151125
  Serious: Yes (Other)
  Sender: FDA-Public Use
  Company Number: PHEH2015US001009

PATIENT
  Age: 31 Year
  Sex: Male
  Weight: 62.5 kg

DRUGS (1)
  1. GILENYA [Suspect]
     Active Substance: FINGOLIMOD HYDROCHLORIDE
     Indication: MULTIPLE SCLEROSIS
     Dosage: 0.5 MG, QD
     Route: 048
     Dates: start: 201412, end: 201507

REACTIONS (14)
  - Paraesthesia [Recovering/Resolving]
  - Rhinorrhoea [Unknown]
  - Body temperature increased [Unknown]
  - Central nervous system lesion [Unknown]
  - Fatigue [Unknown]
  - Limb asymmetry [Unknown]
  - Oropharyngeal pain [Recovering/Resolving]
  - Nasal congestion [Unknown]
  - Nasal discharge discolouration [Unknown]
  - Multiple sclerosis relapse [Unknown]
  - Balance disorder [Unknown]
  - Drug ineffective [Unknown]
  - Nasopharyngitis [Unknown]
  - Cough [Unknown]

NARRATIVE: CASE EVENT DATE: 201412
